FAERS Safety Report 6324244-7 (Version None)
Quarter: 2009Q3

REPORT INFORMATION
  Report Type: 
  Country: None (occurrence: None)
  Receive Date: 20090824
  Receipt Date: 20090420
  Transmission Date: 20100115
  Serious: No
  Sender: FDA-Public Use
  Company Number: US-ABBOTT-09P-163-0569337-00

PATIENT
  Sex: Female

DRUGS (7)
  1. NIASPAN [Suspect]
     Indication: DRUG USE FOR UNKNOWN INDICATION
     Dates: start: 20080401, end: 20090418
  2. INSULIN [Concomitant]
     Indication: DRUG USE FOR UNKNOWN INDICATION
  3. CRESTOR [Concomitant]
     Indication: DRUG USE FOR UNKNOWN INDICATION
  4. FOLIC ACID [Concomitant]
     Indication: DRUG USE FOR UNKNOWN INDICATION
  5. BUSPAR [Concomitant]
     Indication: DRUG USE FOR UNKNOWN INDICATION
  6. LAMICTAL [Concomitant]
     Indication: DRUG USE FOR UNKNOWN INDICATION
  7. AMITIZA [Concomitant]
     Indication: DRUG USE FOR UNKNOWN INDICATION

REACTIONS (3)
  - FLUSHING [None]
  - HOT FLUSH [None]
  - PRURITUS [None]
